FAERS Safety Report 6410137-3 (Version None)
Quarter: 2009Q4

REPORT INFORMATION
  Report Type: 
  Country: None (occurrence: None)
  Receive Date: 20091022
  Receipt Date: 20091015
  Transmission Date: 20100525
  Serious: Yes (Hospitalization)
  Sender: FDA-Public Use
  Company Number: US-ALEXION-A200900806

PATIENT
  Sex: Male

DRUGS (18)
  1. SOLIRIS [Suspect]
     Indication: PAROXYSMAL NOCTURNAL HAEMOGLOBINURIA
     Dosage: 600 MG, QW
     Route: 042
     Dates: start: 20070713, end: 20070803
  2. SOLIRIS [Suspect]
     Dosage: 900 MG, UNK
     Route: 042
     Dates: start: 20070810, end: 20081003
  3. SOLIRIS [Suspect]
     Dosage: UNK
     Route: 042
     Dates: start: 20081006
  4. SOLIRIS [Suspect]
     Dosage: UNK
     Route: 042
     Dates: end: 20090101
  5. SOLIRIS [Suspect]
     Dosage: 600 MG, QW
     Route: 042
     Dates: start: 20090305, end: 20090323
  6. SOLIRIS [Suspect]
     Dosage: 900 MG, Q2W
     Route: 042
     Dates: start: 20090101
  7. NORVASC [Concomitant]
     Dosage: 10 MG, QD
     Route: 048
  8. WELLBATRIN SR [Concomitant]
     Dosage: 150 MG, BID
     Route: 048
  9. LOVENOX [Concomitant]
     Dosage: 70 MG, BID
     Route: 058
  10. FOLIC ACID [Concomitant]
     Dosage: 1 MG, QD
     Route: 048
  11. NOVOLOG [Concomitant]
     Dosage: INSULIN PUMP
  12. ATIVAN [Concomitant]
     Dosage: 1 MG, TID
     Route: 048
  13. LOPRESSOR [Concomitant]
     Dosage: 50 MG, BID
     Route: 048
  14. PRILOSEC [Concomitant]
     Dosage: 40 MG, QD, ACB
     Route: 048
  15. OXYCONTIN [Concomitant]
     Dosage: 80 MG, BID
     Route: 048
  16. SENOKOT                            /00142201/ [Concomitant]
     Dosage: 2 TABS, QD
     Route: 048
  17. CHANTIX [Concomitant]
     Dosage: 0.5 MG, UNK
     Route: 048
  18. COUMADIN [Concomitant]
     Dosage: 5 MG, QDC
     Route: 048

REACTIONS (2)
  - ENDOCARDITIS CANDIDA [None]
  - URINARY TRACT INFECTION [None]
